FAERS Safety Report 4608753-4 (Version None)
Quarter: 2005Q1

REPORT INFORMATION
  Report Type: 
  Country: None (occurrence: None)
  Receive Date: 20050315
  Receipt Date: 20041129
  Transmission Date: 20050727
  Serious: Yes (Death, Other)
  Sender: FDA-Public Use
  Company Number: ES-BRISTOL-MYERS SQUIBB COMPANY-12779286

PATIENT
  Age: 49 Year
  Sex: Female

DRUGS (12)
  1. TAXOL [Suspect]
     Indication: BREAST CANCER METASTATIC
     Route: 042
     Dates: start: 20040826, end: 20040826
  2. VINORELBINE TARTRATE [Suspect]
     Indication: BREAST CANCER METASTATIC
     Dates: start: 20040901, end: 20040901
  3. ONDANSETRON [Concomitant]
     Indication: PREMEDICATION
     Route: 042
  4. DEXAMETHASONE [Concomitant]
     Indication: PREMEDICATION
     Route: 042
  5. DEXCHLORPHENIRAMINE [Concomitant]
     Indication: BREAST CANCER METASTATIC
     Route: 042
  6. RANITIDINE [Concomitant]
     Indication: PREMEDICATION
     Route: 042
  7. ACETAMINOPHEN [Concomitant]
  8. CARVEDILOL [Concomitant]
     Indication: PREMEDICATION
     Route: 042
  9. SPIRONOLACTONE [Concomitant]
  10. INDAPAMIDE [Concomitant]
  11. ENALAPRIL [Concomitant]
  12. CODEINE [Concomitant]

REACTIONS (9)
  - ANAEMIA [None]
  - CARDIAC FAILURE [None]
  - DEATH [None]
  - DIARRHOEA [None]
  - HEPATOTOXICITY [None]
  - METASTASES TO BONE [None]
  - MUCOSAL INFLAMMATION [None]
  - NEUTROPENIA [None]
  - THROMBOCYTOPENIA [None]
